FAERS Safety Report 10111187 (Version 4)
Quarter: 2014Q2

REPORT INFORMATION
  Report Type: Spontaneous
  Country: US (occurrence: US)
  Receive Date: 20140425
  Receipt Date: 20140522
  Transmission Date: 20141212
  Serious: Yes (Hospitalization)
  Sender: FDA-Public Use
  Company Number: US-JNJFOC-20140413828

PATIENT
  Age: 67 Year
  Sex: Female
  Weight: 86.5 kg

DRUGS (5)
  1. XARELTO [Suspect]
     Indication: CEREBROVASCULAR ACCIDENT PROPHYLAXIS
     Route: 048
  2. PLAVIX [Suspect]
     Indication: CORONARY ARTERY DISEASE
     Route: 065
  3. PLAVIX [Suspect]
     Indication: CORONARY ARTERY DISEASE
     Route: 065
  4. ASA [Suspect]
     Indication: CORONARY ARTERY DISEASE
     Route: 048
  5. ASA [Suspect]
     Indication: CORONARY ARTERY DISEASE
     Route: 048

REACTIONS (4)
  - Gastrointestinal haemorrhage [Recovering/Resolving]
  - Haemorrhagic anaemia [Recovering/Resolving]
  - Polyp [Recovering/Resolving]
  - Ulcer [Recovering/Resolving]
